FAERS Safety Report 9584495 (Version 1)
Quarter: 2013Q4

REPORT INFORMATION
  Report Type: Spontaneous
  Country: US (occurrence: US)
  Receive Date: 20131002
  Receipt Date: 20131002
  Transmission Date: 20140711
  Serious: No
  Sender: FDA-Public Use
  Company Number: US-AMGEN-USASP2013053538

PATIENT
  Age: 59 Year
  Sex: Female
  Weight: 87.98 kg

DRUGS (8)
  1. ENBREL [Suspect]
     Indication: PRODUCT USED FOR UNKNOWN INDICATION
     Dosage: 50 MG, Q2WK
     Route: 058
     Dates: start: 20130706
  2. HYZAAR [Concomitant]
     Dosage: 100-25, UNK
  3. REQUIP [Concomitant]
     Dosage: 0.5 MG, UNK
  4. AMBIEN [Concomitant]
     Dosage: 10 MG, UNK
  5. SYNTHROID [Concomitant]
     Dosage: 75 MUG, UNK
  6. MAGNESIUM [Concomitant]
     Dosage: 250 MG, UNK
  7. VITAMIN D                          /00107901/ [Concomitant]
     Dosage: 400 UNIT, UNK
  8. VITAMIN B12                        /00056201/ [Concomitant]
     Dosage: 2500 MUG, UNK

REACTIONS (5)
  - Feeling abnormal [Unknown]
  - Injection site erythema [Unknown]
  - Injection site oedema [Unknown]
  - Injection site warmth [Unknown]
  - Injection site reaction [Unknown]
